FAERS Safety Report 6327315-4 (Version None)
Quarter: 2009Q3

REPORT INFORMATION
  Report Type: 
  Country: None (occurrence: None)
  Receive Date: 20090825
  Receipt Date: 20090722
  Transmission Date: 20100115
  Serious: Yes (Other)
  Sender: FDA-Public Use
  Company Number: US-TYCO HEALTHCARE/MALLINCKRODT-T200901413

PATIENT
  Age: 63 Year
  Sex: Male
  Weight: 92.971 kg

DRUGS (3)
  1. OPTIRAY 350 [Suspect]
     Indication: COMPUTERISED TOMOGRAM
     Dosage: 120 ML (CC), SINGLE
     Route: 042
     Dates: start: 20070101, end: 20070101
  2. OPTIRAY 350 [Suspect]
     Dosage: 120 ML (CC), SINGLE
     Route: 042
     Dates: start: 20070101, end: 20070101
  3. GLUCOTROL XL [Concomitant]
     Indication: DIABETES MELLITUS
     Dosage: UNK
     Route: 048
     Dates: end: 20080101

REACTIONS (9)
  - BURNING SENSATION [None]
  - DIABETES MELLITUS [None]
  - HYPOAESTHESIA [None]
  - MEMORY IMPAIRMENT [None]
  - MUSCLE RIGIDITY [None]
  - MUSCLE SPASMS [None]
  - PAIN IN EXTREMITY [None]
  - PARAESTHESIA [None]
  - WEIGHT INCREASED [None]
